FAERS Safety Report 9277168 (Version 2)
Quarter: 2013Q2

REPORT INFORMATION
  Report Type: Spontaneous
  Country: US (occurrence: US)
  Receive Date: 20130508
  Receipt Date: 20130517
  Transmission Date: 20140414
  Serious: Yes (Other)
  Sender: FDA-Public Use
  Company Number: US-AMGEN-USASP2013031420

PATIENT
  Age: 61 Year
  Sex: Male
  Weight: 87.53 kg

DRUGS (10)
  1. ENBREL [Suspect]
     Indication: ANKYLOSING SPONDYLITIS
     Dosage: 50 MG, QWK
     Route: 058
     Dates: start: 2004
  2. ROBAXIN [Concomitant]
     Dosage: UNK
  3. TYLENOL                            /00020001/ [Concomitant]
     Dosage: 3 PM UNK
  4. PREDNISONE [Concomitant]
     Dosage: PM, UNK
  5. ATORVASTATIN [Concomitant]
     Dosage: UNK
  6. AVODART [Concomitant]
     Dosage: UNK
  7. CALCIUM +D3 [Concomitant]
     Dosage: UNK UNK, QD
  8. FE                                 /00023514/ [Concomitant]
     Dosage: 325 MG, QD
  9. ATENOLOL [Concomitant]
     Dosage: UNK
  10. LISINOPRIL [Concomitant]
     Dosage: UNK

REACTIONS (2)
  - Haematospermia [Not Recovered/Not Resolved]
  - Increased tendency to bruise [Not Recovered/Not Resolved]
